FAERS Safety Report 4268131-7 (Version None)
Quarter: 2004Q1

REPORT INFORMATION
  Report Type: 
  Country: None (occurrence: None)
  Receive Date: 20040109
  Receipt Date: 20040109
  Transmission Date: 20041129
  Serious: Yes (Hospitalization)
  Sender: FDA-Public Use
  Company Number: None

PATIENT
  Age: 8 Year
  Sex: Male
  Weight: 34.2 kg

DRUGS (1)
  1. ABILIFY [Suspect]
     Dosage: 5 MG BID ORAL
     Route: 048
     Dates: start: 20031008, end: 20031012

REACTIONS (3)
  - GRIMACING [None]
  - MOVEMENT DISORDER [None]
  - MUSCLE TIGHTNESS [None]
